FAERS Safety Report 12159371 (Version 1)
Quarter: 2016Q1

REPORT INFORMATION
  Report Type: Spontaneous
  Country: US (occurrence: US)
  Receive Date: 20160308
  Receipt Date: 20160308
  Transmission Date: 20160526
  Serious: No
  Sender: FDA-Public Use
  Company Number: US-PFIZER INC-2016125661

PATIENT
  Age: 59 Year
  Sex: Female
  Weight: 82 kg

DRUGS (9)
  1. METFORMIN [Concomitant]
     Active Substance: METFORMIN HYDROCHLORIDE
     Indication: DIABETES MELLITUS
     Dosage: 500 MG, 2X/DAY
  2. CURCUMIN [Concomitant]
     Active Substance: CURCUMIN
     Indication: NEOPLASM MALIGNANT
  3. IBRANCE [Suspect]
     Active Substance: PALBOCICLIB
     Indication: BREAST CANCER
     Dosage: 125 MG, 1X/DAY
     Route: 048
     Dates: start: 201505
  4. CURCUMIN [Concomitant]
     Active Substance: CURCUMIN
     Indication: INFLAMMATION
     Dosage: 1330 MG, 4X/DAY
  5. ATIVAN [Concomitant]
     Active Substance: LORAZEPAM
     Indication: INSOMNIA
     Dosage: 1 MG, AS NEEDED, AT NIGHT
  6. ATIVAN [Concomitant]
     Active Substance: LORAZEPAM
     Indication: STRESS
  7. VITAMIN B12 [Concomitant]
     Active Substance: CYANOCOBALAMIN
     Indication: VITAMIN SUPPLEMENTATION
  8. VITAMIN B12 [Concomitant]
     Active Substance: CYANOCOBALAMIN
     Indication: STRESS
     Dosage: UNK UNK, 1X/DAY
  9. CELEBREX [Concomitant]
     Active Substance: CELECOXIB
     Indication: ARTHRALGIA
     Dosage: 200 MG, 2X/DAY

REACTIONS (3)
  - Fatigue [Recovering/Resolving]
  - Breast cancer [Not Recovered/Not Resolved]
  - Disease progression [Not Recovered/Not Resolved]

NARRATIVE: CASE EVENT DATE: 2015
